FAERS Safety Report 8043744-5 (Version None)
Quarter: 2012Q1

REPORT INFORMATION
  Report Type: 
  Country: None (occurrence: None)
  Receive Date: 20120113
  Receipt Date: 20120103
  Transmission Date: 20120608
  Serious: Yes (Other)
  Sender: FDA-Public Use
  Company Number: US-BIOGENIDEC-2011BI046681

PATIENT
  Age: 60 Year
  Sex: Female

DRUGS (3)
  1. AVONEX [Suspect]
     Route: 030
  2. AVONEX [Suspect]
     Route: 030
     Dates: start: 20010301, end: 20080101
  3. AVONEX [Suspect]
     Indication: MULTIPLE SCLEROSIS
     Route: 030

REACTIONS (16)
  - LIGAMENT SPRAIN [None]
  - MUSCLE SPASMS [None]
  - INFLUENZA LIKE ILLNESS [None]
  - MEMORY IMPAIRMENT [None]
  - EYELID PTOSIS [None]
  - FALL [None]
  - BALANCE DISORDER [None]
  - CONTUSION [None]
  - MUSCULAR WEAKNESS [None]
  - DIARRHOEA [None]
  - INJECTION SITE HAEMORRHAGE [None]
  - THYROIDECTOMY [None]
  - FATIGUE [None]
  - HYSTERECTOMY [None]
  - SKIN CANCER [None]
  - COGNITIVE DISORDER [None]
